FAERS Safety Report 17078578 (Version 1)
Quarter: 2019Q4

REPORT INFORMATION
  Report Type: Report from Study
  Country: None (occurrence: AU)
  Receive Date: 20191127
  Receipt Date: 20191127
  Transmission Date: 20200122
  Serious: Yes (Hospitalization, Other)
  Sender: FDA-Public Use
  Company Number: AU-ABBVIE-19K-008-3013589-00

PATIENT
  Age: 72 Year
  Sex: Male

DRUGS (1)
  1. LUCRIN DEPOT [Suspect]
     Active Substance: LEUPROLIDE ACETATE
     Indication: PROSTATE CANCER
     Route: 030
     Dates: start: 20180522

REACTIONS (2)
  - Cerebrovascular accident [Recovering/Resolving]
  - Carotid arteriosclerosis [Unknown]

NARRATIVE: CASE EVENT DATE: 20190915
